FAERS Safety Report 25425026 (Version 1)
Quarter: 2025Q2

REPORT INFORMATION
  Report Type: Spontaneous
  Country: US (occurrence: US)
  Receive Date: 20250611
  Receipt Date: 20250611
  Transmission Date: 20250717
  Serious: No
  Sender: BAYER HEALTHCARE LLC
  Company Number: US-BAYER-2025A077870

PATIENT
  Sex: Female

DRUGS (2)
  1. CLARITIN [Suspect]
     Active Substance: LORATADINE
     Indication: Urticaria
     Route: 065
  2. CLARITIN [Suspect]
     Active Substance: LORATADINE
     Indication: Pruritus

REACTIONS (1)
  - Product prescribing issue [Unknown]
